FAERS Safety Report 20197839 (Version 1)
Quarter: 2021Q4

REPORT INFORMATION
  Report Type: Spontaneous
  Country: ES (occurrence: ES)
  Receive Date: 20211217
  Receipt Date: 20211217
  Transmission Date: 20220303
  Serious: Yes (Death, Life-Threatening, Hospitalization)
  Sender: FDA-Public Use
  Company Number: ES-STRIDES ARCOLAB LIMITED-2021SP031161

PATIENT
  Age: 76 Year
  Sex: Male

DRUGS (3)
  1. PREDNISOLONE [Suspect]
     Active Substance: PREDNISOLONE
     Indication: Renal transplant failure
     Dosage: 10 MILLIGRAM, PER DAY
     Route: 065
  2. TACROLIMUS [Suspect]
     Active Substance: TACROLIMUS
     Indication: Renal transplant failure
     Dosage: UNK, (LOW-DOSE TACROLIMUS)
     Route: 065
     Dates: end: 201910
  3. ASPIRIN [Concomitant]
     Active Substance: ASPIRIN
     Indication: Product used for unknown indication
     Dosage: 100 MILLIGRAM, PER DAY
     Route: 065

REACTIONS (3)
  - COVID-19 pneumonia [Fatal]
  - Herpes oesophagitis [Unknown]
  - Asymptomatic COVID-19 [Recovered/Resolved]
